FAERS Safety Report 7444297-2 (Version None)
Quarter: 2011Q2

REPORT INFORMATION
  Report Type: 
  Country: None (occurrence: None)
  Receive Date: 20110419
  Receipt Date: 20110411
  Transmission Date: 20111010
  Serious: Yes (Death, Life-Threatening, Hospitalization, Other)
  Sender: FDA-Public Use
  Company Number: 2009AC000079

PATIENT
  Age: 29 Year
  Sex: Female
  Weight: 125 kg

DRUGS (122)
  1. DIGOXIN [Suspect]
     Dosage: 0.125 MG;QD;PO
     Route: 048
  2. ZAROXOLYN [Concomitant]
  3. RAMIPRIL [Concomitant]
  4. CLAFORAN SHOT [Concomitant]
  5. CLOMID [Concomitant]
  6. NITROGLYCERIN [Concomitant]
  7. AUGMENTIN [Concomitant]
  8. VICONDIN [Concomitant]
  9. HYDROCHLOROTHIAZIDE [Concomitant]
  10. EPLERONONE [Concomitant]
  11. VASOPRESSIN [Concomitant]
  12. VANCOMYCIN [Concomitant]
  13. PREGABALIN [Concomitant]
  14. BUMEX [Concomitant]
  15. DIGOXIN [Suspect]
     Dosage: 0.25 MG;QD;PO
     Route: 048
     Dates: start: 20070901
  16. COMBIVENT [Concomitant]
  17. CARVEDILOL [Concomitant]
  18. PROVERA [Concomitant]
  19. CEFUROXIME [Concomitant]
  20. LEVAQUIN [Concomitant]
  21. BENADRYL [Concomitant]
  22. INSPRA [Concomitant]
  23. ESCITALOPRAN [Concomitant]
  24. MORPHINE [Concomitant]
  25. LIDODERM [Concomitant]
  26. PROMETHAZINE W/ CODEINE [Concomitant]
  27. DIGOXIN [Suspect]
     Dosage: 0.25 MG;QD;PO
     Dates: start: 19970129, end: 19970101
  28. DIGOXIN [Suspect]
     Dosage: 250 MCG;QD;PO
     Route: 048
     Dates: start: 20071001
  29. DIGOXIN [Suspect]
     Dosage: 0.125 MG;QD;PO
     Route: 048
     Dates: start: 20040313, end: 20060801
  30. TEQUIN [Concomitant]
  31. GUAIFENESIN [Concomitant]
  32. PRINIVIL [Concomitant]
  33. POTASSIUM CHLORIDE [Concomitant]
  34. AMIODARONE HCL [Concomitant]
  35. HYDROCODONE BITARTRATE [Concomitant]
  36. XANEX [Concomitant]
  37. ONDANSETRON [Concomitant]
  38. PRINIVIL [Concomitant]
  39. CATAFLAM [Concomitant]
  40. DIGOXIN [Suspect]
     Dosage: 0.125 MG;QD;PO
     Route: 048
     Dates: start: 20080201, end: 20080901
  41. LIPITOR [Concomitant]
  42. CARVEDILOL [Concomitant]
  43. METOLAZONE [Concomitant]
  44. MAG OXIDE [Concomitant]
  45. KENALOG [Concomitant]
  46. CYCLOBENZAPRINE [Concomitant]
  47. ALLEGRA [Concomitant]
  48. MUCINEX [Concomitant]
  49. NASONEX [Concomitant]
  50. ATIVAN [Concomitant]
  51. ZOFRAN [Concomitant]
  52. BUMETANIDE [Concomitant]
  53. CEFEPIME [Concomitant]
  54. FLUOCONAZOLE [Concomitant]
  55. ISUPREL [Concomitant]
  56. CLONIDINE [Concomitant]
  57. MONOPRIL [Concomitant]
  58. POTASSIUM [Concomitant]
  59. MILRINONE [Concomitant]
  60. DIGOXIN [Suspect]
     Indication: PERIPARTUM CARDIOMYOPATHY
     Dosage: .25 MG;Q6H;PO
     Route: 048
     Dates: start: 19961010, end: 19961010
  61. DIGOXIN [Suspect]
     Indication: PERIPARTUM CARDIOMYOPATHY
     Dosage: 0.25 MG;QD;PO
     Route: 048
     Dates: start: 19961010
  62. K-DUR [Concomitant]
  63. LISINOPRIL [Concomitant]
  64. ZOLPIDEM [Concomitant]
  65. DIPYRIDAMOLE [Concomitant]
  66. METOLAZONE [Concomitant]
  67. MERIDIA [Concomitant]
  68. PROTONIX [Concomitant]
  69. PHENERGAN HCL [Concomitant]
  70. DEMEROL [Concomitant]
  71. LEVOPHED [Concomitant]
  72. FOLIC ACID [Concomitant]
  73. ACETAMINOPHEN [Concomitant]
  74. LASIX [Concomitant]
  75. METOPROLOL SUCCINATE [Concomitant]
  76. PRIMACOR [Concomitant]
  77. VICODIN [Concomitant]
  78. SKELAXIN [Concomitant]
  79. HEPARIN [Concomitant]
  80. NATRECOR [Concomitant]
  81. ALBUTEROL [Concomitant]
  82. LACTUTOSE [Concomitant]
  83. VIAGRA [Concomitant]
  84. MERIDIA [Concomitant]
  85. CLOMID [Concomitant]
  86. SPIRONOLACTONE [Concomitant]
  87. COUMADIN [Concomitant]
  88. MULTI-VITAMINS [Concomitant]
  89. TOPROL-XL [Concomitant]
  90. AMOXICILLIN [Concomitant]
  91. URSODIOL [Concomitant]
  92. AMBIEN [Concomitant]
  93. INSULIN [Concomitant]
  94. COLACE [Concomitant]
  95. TORSEMIDE [Concomitant]
  96. EPINEPHRINE [Concomitant]
  97. FENTANYL [Concomitant]
  98. ARANESP [Concomitant]
  99. MEDROXYPRORESTERONE [Concomitant]
  100. CLOMIPHENE CITRATE [Concomitant]
  101. COREG [Concomitant]
  102. KAY CIEL DURA-TABS [Concomitant]
  103. PROPA-N/APAP [Concomitant]
  104. KLOR-CON [Concomitant]
  105. POTASSIUM [Concomitant]
  106. XENICAL [Concomitant]
  107. ASPIRIN [Concomitant]
  108. ALTACE [Concomitant]
  109. NAPROXEN [Concomitant]
  110. ZITIIROMAX [Concomitant]
  111. LORTAB [Concomitant]
  112. NESIRITIDE [Concomitant]
  113. LOVENOX [Concomitant]
  114. PERSANTINE [Concomitant]
  115. SEROQUEL [Concomitant]
  116. VERSED [Concomitant]
  117. DILAUDID [Concomitant]
  118. GLUTAMINE [Concomitant]
  119. ZOFRAN [Concomitant]
  120. KLONOPIN [Concomitant]
  121. VASOTEC [Concomitant]
  122. MAGNESIUM OXIDE [Concomitant]

REACTIONS (16)
  - INFLUENZA LIKE ILLNESS [None]
  - SUPRAVENTRICULAR TACHYCARDIA [None]
  - URINARY TRACT INFECTION [None]
  - HYPERTENSION [None]
  - TREATMENT NONCOMPLIANCE [None]
  - CARDIOMYOPATHY [None]
  - UTERINE CANCER [None]
  - UPPER RESPIRATORY TRACT INFECTION [None]
  - CHOLECYSTITIS [None]
  - CARDIAC FAILURE CONGESTIVE [None]
  - BRONCHITIS [None]
  - INSOMNIA [None]
  - CARDIOMEGALY [None]
  - PNEUMONIA [None]
  - PRESYNCOPE [None]
  - WOUND INFECTION [None]
